FAERS Safety Report 4947574-X (Version None)
Quarter: 2006Q1

REPORT INFORMATION
  Report Type: 
  Country: None (occurrence: None)
  Receive Date: 20060314
  Receipt Date: 20060302
  Transmission Date: 20060701
  Serious: Yes (Other)
  Sender: FDA-Public Use
  Company Number: 2006019903

PATIENT
  Sex: Female

DRUGS (1)
  1. XALATAN [Suspect]
     Indication: ABNORMAL SENSATION IN EYE
     Dosage: 2 DROP (1 DROP,K 1 IN 1 D), OPHTHALMIC
     Route: 047

REACTIONS (1)
  - HIP FRACTURE [None]
